FAERS Safety Report 6940908-6 (Version None)
Quarter: 2010Q3

REPORT INFORMATION
  Report Type: 
  Country: None (occurrence: None)
  Receive Date: 20100825
  Receipt Date: 20100813
  Transmission Date: 20110219
  Serious: Yes (Hospitalization, Disabling)
  Sender: FDA-Public Use
  Company Number: A0777244A

PATIENT
  Sex: Female
  Weight: 136.4 kg

DRUGS (9)
  1. AVANDIA [Suspect]
     Indication: DIABETES MELLITUS
     Dosage: 8MG PER DAY
     Route: 048
     Dates: end: 20061211
  2. ZOLOFT [Concomitant]
  3. LEVOTHYROXINE [Concomitant]
  4. GLUCOPHAGE [Concomitant]
  5. AMBIEN [Concomitant]
  6. INSULIN [Concomitant]
  7. TRICOR [Concomitant]
  8. PRAVACHOL [Concomitant]
  9. FORTAMET [Concomitant]

REACTIONS (8)
  - AORTIC STENOSIS [None]
  - CARDIAC DISORDER [None]
  - CARDIAC FAILURE CONGESTIVE [None]
  - CARDIOMYOPATHY [None]
  - CORONARY ARTERY DISEASE [None]
  - HYPERTENSION [None]
  - MYOCARDIAL INFARCTION [None]
  - PULMONARY HYPERTENSION [None]
